FAERS Safety Report 5087835-X (Version None)
Quarter: 2006Q3

REPORT INFORMATION
  Report Type: 
  Country: None (occurrence: None)
  Receive Date: 20060821
  Receipt Date: 20060821
  Transmission Date: 20061208
  Serious: Yes (Other)
  Sender: FDA-Public Use
  Company Number: None

PATIENT
  Age: 11 Year
  Sex: Male
  Weight: 31.7 kg

DRUGS (1)
  1. PROPOFOL [Suspect]
     Indication: THERAPEUTIC PROCEDURE
     Dosage: 100 MG ONCE IV BOLUS
     Route: 040
     Dates: start: 20060816, end: 20060816

REACTIONS (1)
  - DRUG EFFECT DECREASED [None]
